FAERS Safety Report 6253501-8 (Version None)
Quarter: 2009Q2

REPORT INFORMATION
  Report Type: 
  Country: None (occurrence: None)
  Receive Date: 20090629
  Receipt Date: 20090629
  Transmission Date: 20091009
  Serious: Yes (Life-Threatening)
  Sender: FDA-Public Use
  Company Number: None

PATIENT
  Age: 15 Month
  Sex: Female

DRUGS (1)
  1. ONDANSETRON [Suspect]
     Indication: NAUSEA
     Dosage: 1 MG Q12H PRN - IV BOLUS; ONE DOSE
     Route: 040
     Dates: start: 20090609, end: 20090609

REACTIONS (2)
  - ERYTHEMA [None]
  - HYPOVENTILATION [None]
